FAERS Safety Report 9351539 (Version 3)
Quarter: 2013Q3

REPORT INFORMATION
  Report Type: Spontaneous
  Country: GB (occurrence: GB)
  Receive Date: 20130617
  Receipt Date: 20130703
  Transmission Date: 20140515
  Serious: Yes (Other)
  Sender: FDA-Public Use
  Company Number: GB-TEVA-410802ISR

PATIENT
  Age: 74 Year
  Sex: Female
  Weight: 64.7 kg

DRUGS (6)
  1. APREPITANT [Concomitant]
     Indication: ANTIEMETIC SUPPORTIVE CARE
     Route: 048
     Dates: start: 20120823, end: 20121031
  2. DEXAMETHASONE [Concomitant]
     Indication: ANTIEMETIC SUPPORTIVE CARE
     Route: 041
     Dates: start: 20120704, end: 20121031
  3. ONDANSETRON [Concomitant]
     Indication: ANTIEMETIC SUPPORTIVE CARE
     Route: 041
     Dates: start: 20120704, end: 20121031
  4. GLUCOSAMINE [Concomitant]
     Indication: ARTHRITIS
     Route: 048
  5. CARBOPLATIN [Suspect]
     Indication: OVARIAN CANCER
     Route: 041
     Dates: start: 20120704, end: 20121031
  6. ABRAXANE [Suspect]
     Indication: OVARIAN CANCER
     Route: 041
     Dates: start: 20120913, end: 20121002

REACTIONS (3)
  - Skin odour abnormal [Recovered/Resolved]
  - Skin burning sensation [Recovered/Resolved]
  - Nausea [Recovered/Resolved]
